FAERS Safety Report 7077617-1 (Version None)
Quarter: 2010Q4

REPORT INFORMATION
  Report Type: 
  Country: None (occurrence: None)
  Receive Date: 20101101
  Receipt Date: 20091023
  Transmission Date: 20110411
  Serious: Yes (Hospitalization)
  Sender: FDA-Public Use
  Company Number: DE-AMGEN-US371698

PATIENT

DRUGS (10)
  1. ETANERCEPT [Suspect]
     Indication: RHEUMATOID ARTHRITIS
     Dosage: 50 MG, QWK
     Route: 058
     Dates: start: 20080721
  2. METEX [Concomitant]
     Indication: RHEUMATOID ARTHRITIS
     Dosage: 15 MG, QWK
     Route: 058
  3. DICLOFENAC SODIUM [Concomitant]
     Indication: RHEUMATOID ARTHRITIS
     Dosage: 25 MG, QD
     Route: 048
     Dates: start: 20090109
  4. PREDNISOLONE [Concomitant]
     Indication: RHEUMATOID ARTHRITIS
     Dosage: 8 MG, QD
     Route: 048
  5. CALCIUM [Concomitant]
  6. COLECALCIFEROL [Concomitant]
  7. AMITRIPTYLINE HCL [Concomitant]
  8. FOLIC ACID [Concomitant]
  9. ENBREL [Suspect]
     Indication: RHEUMATOID ARTHRITIS
     Route: 058
     Dates: start: 20080721
  10. VOLTAREN [Concomitant]
     Indication: RHEUMATOID ARTHRITIS
     Route: 048
     Dates: start: 20090109

REACTIONS (2)
  - FEMORAL NECK FRACTURE [None]
  - TRANSIENT ISCHAEMIC ATTACK [None]
